FAERS Safety Report 25655346 (Version 1)
Quarter: 2025Q3

REPORT INFORMATION
  Report Type: Spontaneous
  Country: US (occurrence: None)
  Receive Date: 20250807
  Receipt Date: 20250807
  Transmission Date: 20251020
  Serious: Yes (Other)
  Sender: FDA-CTU
  Company Number: None

PATIENT
  Age: 37 Year
  Sex: Female
  Weight: 117 kg

DRUGS (7)
  1. OZEMPIC [Suspect]
     Active Substance: SEMAGLUTIDE
     Indication: Hyperglycaemia
     Dates: start: 20250119, end: 20250329
  2. SYNTHROID [Concomitant]
     Active Substance: LEVOTHYROXINE SODIUM
  3. ZOLOFT [Concomitant]
     Active Substance: SERTRALINE HYDROCHLORIDE
  4. C-pap [Concomitant]
  5. Prilosec (new since LPR) [Concomitant]
  6. B12 [Concomitant]
  7. Pre-natal [Concomitant]

REACTIONS (1)
  - Reflux laryngitis [None]

NARRATIVE: CASE EVENT DATE: 20250401
